FAERS Safety Report 17421261 (Version 2)
Quarter: 2020Q1

REPORT INFORMATION
  Report Type: Report from Study
  Country: US (occurrence: US)
  Receive Date: 20200214
  Receipt Date: 20200219
  Transmission Date: 20200409
  Serious: Yes (Hospitalization, Other)
  Sender: FDA-Public Use
  Company Number: US-HORIZON-ACT-0086-2020

PATIENT
  Age: 29 Year
  Sex: Male

DRUGS (1)
  1. ACTIMMUNE [Suspect]
     Active Substance: INTERFERON GAMMA-1B
     Indication: CHRONIC GRANULOMATOUS DISEASE
     Dosage: 0.485ML THREE TIMES A WEEK; REDUCED TO 0.24ML TIW FOR 2 WEEKS
     Dates: start: 20191120

REACTIONS (13)
  - Chills [Unknown]
  - Pyrexia [Recovered/Resolved]
  - Oxygen therapy [Recovered/Resolved]
  - Sputum increased [Unknown]
  - Vomiting [Unknown]
  - Viral infection [Recovered/Resolved]
  - Tremor [Unknown]
  - Dyspnoea [Recovered/Resolved]
  - Influenza like illness [Unknown]
  - Pyrexia [Unknown]
  - Nasal congestion [Unknown]
  - Product dose omission [Unknown]
  - Unevaluable event [Unknown]

NARRATIVE: CASE EVENT DATE: 202002
